FAERS Safety Report 6162035-0 (Version None)
Quarter: 2009Q2

REPORT INFORMATION
  Report Type: 
  Country: None (occurrence: None)
  Receive Date: 20090417
  Receipt Date: 20090417
  Transmission Date: 20091009
  Serious: Yes (Hospitalization)
  Sender: FDA-Public Use
  Company Number: None

PATIENT
  Age: 73 Year
  Sex: Female
  Weight: 99.4 kg

DRUGS (3)
  1. LOVENOX [Suspect]
     Indication: PULMONARY EMBOLISM
     Dosage: 95 MG DAILY SQ
     Route: 058
  2. ENOXAPARIN SODIUM [Suspect]
     Indication: PULMONARY EMBOLISM
     Dosage: 95 MG DAILY SQ
     Route: 058
  3. WARFARIN SODIUM [Suspect]
     Dosage: 10MG, THE 5 MG DAYS 1 AND 2 PO
     Route: 048

REACTIONS (3)
  - PULMONARY HAEMORRHAGE [None]
  - RETROPERITONEAL HAEMORRHAGE [None]
  - SYNCOPE [None]
